FAERS Safety Report 8990426 (Version 1)
Quarter: 2012Q4

REPORT INFORMATION
  Report Type: 
  Country: JP (occurrence: US)
  Receive Date: 20121228
  Receipt Date: 20121228
  Transmission Date: 20130627
  Serious: Yes (Other)
  Sender: FDA-Public Use
  Company Number: US-EISAI INC-E3810-06155-SPO-JP

PATIENT
  Age: 54 Year
  Sex: Male

DRUGS (14)
  1. PARIET (RABEPRAZOLE) [Suspect]
     Indication: DRUG USE FOR UNKNOWN INDICATION
     Route: 048
  2. NICHISTATE [Suspect]
     Route: 048
  3. ALLOPURINOL [Suspect]
     Route: 048
  4. ARANESP [Concomitant]
     Indication: NEPHROGENIC ANAEMIA
     Dates: start: 200911
  5. REGPARA [Concomitant]
  6. ASPARA-CA [Concomitant]
  7. LUPRAC [Concomitant]
  8. KALLIKREIN [Concomitant]
  9. PLATIBIT [Concomitant]
  10. SELBEX [Concomitant]
  11. OLMETEC [Concomitant]
  12. RENAGEL [Concomitant]
  13. FOSRENOL [Concomitant]
  14. CALTAN [Concomitant]

REACTIONS (3)
  - Aplasia pure red cell [Unknown]
  - Dialysis [None]
  - Occult blood [None]
